FAERS Safety Report 6011940-4 (Version None)
Quarter: 2008Q4

REPORT INFORMATION
  Report Type: 
  Country: None (occurrence: None)
  Receive Date: 20081218
  Receipt Date: 20081008
  Transmission Date: 20090506
  Serious: Yes (Hospitalization)
  Sender: FDA-Public Use
  Company Number: US-ASTRAZENECA-2008UW22037

PATIENT
  Age: 46 Year
  Sex: Female
  Weight: 90.7 kg

DRUGS (13)
  1. CRESTOR [Suspect]
     Route: 048
  2. SIMVASTATIN [Concomitant]
  3. MAALOX [Concomitant]
  4. ZOFRAN [Concomitant]
  5. PREDNISONE TAB [Concomitant]
  6. TYLENOL (CAPLET) [Concomitant]
  7. LOVENOX [Concomitant]
  8. ASPIRIN [Concomitant]
     Dosage: 81 MG
  9. PROZAC [Concomitant]
  10. TOPROL-XL [Concomitant]
     Route: 048
  11. THIAMINE HCL [Concomitant]
  12. FOLIC ACID [Concomitant]
  13. MULTI-VITAMIN [Concomitant]

REACTIONS (2)
  - BLOOD CREATINE PHOSPHOKINASE INCREASED [None]
  - RHABDOMYOLYSIS [None]
